FAERS Safety Report 9036319 (Version 1)
Quarter: 2013Q1

REPORT INFORMATION
  Report Type: Spontaneous
  Country: US (occurrence: None)
  Receive Date: 20130117
  Receipt Date: 20130117
  Transmission Date: 20140127
  Serious: Yes (Other)
  Sender: FDA-Public Use
  Company Number: None

PATIENT
  Age: 54 Year
  Sex: Male
  Weight: 83.01 kg

DRUGS (2)
  1. GENERIC HCTZ [Suspect]
     Route: 048
  2. GENERIC DIOVAN [Suspect]
     Route: 048

REACTIONS (2)
  - Swelling [None]
  - Drug ineffective [None]
